FAERS Safety Report 12083143 (Version 1)
Quarter: 2016Q1

REPORT INFORMATION
  Report Type: Spontaneous
  Country: US (occurrence: None)
  Receive Date: 20160216
  Receipt Date: 20160216
  Transmission Date: 20160526
  Serious: Yes (Life-Threatening)
  Sender: FDA-Public Use
  Company Number: None

PATIENT
  Age: 41 Year
  Sex: Female
  Weight: 87.54 kg

DRUGS (1)
  1. DOLOBID [Suspect]
     Active Substance: DIFLUNISAL
     Indication: ARTHRALGIA
     Dosage: 1 TAB BID TWICE DAILY TAKEN BY MOUTH
     Route: 048
     Dates: start: 20160125, end: 20160210

REACTIONS (7)
  - Rash pruritic [None]
  - Pain [None]
  - Stomatitis [None]
  - Urticaria [None]
  - Lip swelling [None]
  - Swollen tongue [None]
  - Lip discolouration [None]

NARRATIVE: CASE EVENT DATE: 20160210
